FAERS Safety Report 5903360-5 (Version None)
Quarter: 2008Q3

REPORT INFORMATION
  Report Type: 
  Country: None (occurrence: None)
  Receive Date: 20080926
  Receipt Date: 20080918
  Transmission Date: 20090109
  Serious: Yes (Life-Threatening)
  Sender: FDA-Public Use
  Company Number: 2008TJ0224

PATIENT
  Age: 81 Year
  Sex: Female

DRUGS (3)
  1. TWINJECT 0.3 [Suspect]
     Indication: ANAPHYLACTIC REACTION
     Dosage: 0.3 MG, PRN, SUBCUTANEOUS/INTRAMUSCULAR
     Route: 058
     Dates: start: 20080911, end: 20080911
  2. NORVASC [Concomitant]
  3. LIPITOR [Concomitant]

REACTIONS (3)
  - DEVICE MALFUNCTION [None]
  - LOSS OF CONSCIOUSNESS [None]
  - PHARMACEUTICAL PRODUCT COMPLAINT [None]
